FAERS Safety Report 6331183-4 (Version None)
Quarter: 2009Q3

REPORT INFORMATION
  Report Type: 
  Country: None (occurrence: None)
  Receive Date: 20090827
  Receipt Date: 20090820
  Transmission Date: 20100115
  Serious: Yes (Hospitalization)
  Sender: FDA-Public Use
  Company Number: US-AVENTIS-200916940US

PATIENT
  Sex: Female
  Weight: 101.3 kg

DRUGS (13)
  1. LANTUS [Suspect]
     Route: 058
     Dates: start: 20090801
  2. GLIMEPIRIDE [Concomitant]
     Dosage: DOSE: ONE HALF TABLET IN AM AND PM
  3. PREDINISONE [Concomitant]
     Indication: TEMPORAL ARTERITIS
  4. HYDRALAZINE HCL [Concomitant]
     Indication: BLOOD PRESSURE ABNORMAL
  5. METOLAZONE [Concomitant]
     Indication: FLUID RETENTION
  6. FUROSEMIDE [Concomitant]
     Indication: FLUID RETENTION
  7. HUMALOG [Concomitant]
     Dosage: DOSE: 2-8 UNITS
     Route: 058
  8. ALLOPURINOL [Concomitant]
     Indication: GOUT
  9. DIGOXIN [Concomitant]
     Indication: HEART RATE ABNORMAL
  10. METOPROLOL [Concomitant]
     Indication: HEART RATE ABNORMAL
  11. PRILOSEC [Concomitant]
  12. IRON [Concomitant]
  13. ASPIRIN [Concomitant]

REACTIONS (1)
  - HEART RATE IRREGULAR [None]
